FAERS Safety Report 11109606 (Version 3)
Quarter: 2015Q2

REPORT INFORMATION
  Report Type: Spontaneous
  Country: CN (occurrence: CN)
  Receive Date: 20150513
  Receipt Date: 20150527
  Transmission Date: 20150821
  Serious: Yes (Hospitalization, Other)
  Sender: FDA-Public Use
  Company Number: CN-009507513-1505CHN003778

PATIENT

DRUGS (2)
  1. FOSAMAX [Suspect]
     Active Substance: ALENDRONATE SODIUM
     Indication: OSTEOPOROSIS
     Dosage: 70 MG, EVERY WEEK
     Route: 048
     Dates: start: 20150411, end: 20150502
  2. ZOCOR [Suspect]
     Active Substance: SIMVASTATIN
     Dosage: UNK
     Route: 048
     Dates: start: 2012

REACTIONS (5)
  - Rhabdomyolysis [Recovered/Resolved]
  - Dysuria [Unknown]
  - Adverse event [Unknown]
  - Osteoporosis [Unknown]
  - Bladder dilatation [Unknown]

NARRATIVE: CASE EVENT DATE: 2015
